FAERS Safety Report 24290408 (Version 2)
Quarter: 2024Q4

REPORT INFORMATION
  Report Type: Spontaneous
  Country: US (occurrence: US)
  Receive Date: 20240906
  Receipt Date: 20241021
  Transmission Date: 20250114
  Serious: Yes (Other)
  Sender: BAXTER
  Company Number: US-BAXTER-2024BAX023850

PATIENT
  Age: 76 Year
  Sex: Male
  Weight: 108.1 kg

DRUGS (8)
  1. MYXREDLIN [Suspect]
     Active Substance: INSULIN HUMAN
     Indication: Diabetes mellitus
     Dosage: 10 UNITS/HOUR DILUTED IN 100 ML OF 0.9% SODIUM CHLORIDE INFUSION
     Route: 065
     Dates: start: 20240710
  2. MYXREDLIN [Suspect]
     Active Substance: INSULIN HUMAN
     Indication: Diabetes mellitus inadequate control
     Dosage: 25 UNITS/HOUR
     Route: 065
     Dates: start: 20240711
  3. MYXREDLIN [Suspect]
     Active Substance: INSULIN HUMAN
     Indication: Hyperglycaemia
     Dosage: 2-41 UNITS/HR
     Route: 042
     Dates: start: 20241107
  4. MYXREDLIN [Suspect]
     Active Substance: INSULIN HUMAN
     Dosage: 2-41 UNITS/HR
     Route: 042
     Dates: start: 20241107
  5. EPINEPHRINE [Suspect]
     Active Substance: EPINEPHRINE
     Dosage: UNK
     Route: 065
  6. METHYLPREDNISOLONE [Concomitant]
     Active Substance: METHYLPREDNISOLONE
     Indication: Nervous system disorder prophylaxis
     Dosage: 1000 MG
     Route: 042
     Dates: start: 20240710
  7. HYDROCORTISONE [Concomitant]
     Active Substance: HYDROCORTISONE
     Indication: Steroid therapy
     Dosage: 100 MG
     Route: 042
     Dates: start: 20240711
  8. HYDROCORTISONE [Concomitant]
     Active Substance: HYDROCORTISONE
     Indication: Stress management

REACTIONS (2)
  - Critical illness [Unknown]
  - Drug ineffective [Recovering/Resolving]

NARRATIVE: CASE EVENT DATE: 20240710
